FAERS Safety Report 20769085 (Version 3)
Quarter: 2022Q2

REPORT INFORMATION
  Report Type: Report from Study
  Country: US (occurrence: US)
  Receive Date: 20220429
  Receipt Date: 20220614
  Transmission Date: 20220721
  Serious: Yes (Other)
  Sender: FDA-Public Use
  Company Number: US-NOVARTISTESTPH-NVSC2022US097230

PATIENT
  Sex: Female

DRUGS (2)
  1. GILENYA [Suspect]
     Active Substance: FINGOLIMOD HYDROCHLORIDE
     Indication: Multiple sclerosis
     Dosage: 0.5 MG, QD
     Route: 048
     Dates: start: 20171111
  2. LEXAPRO [Concomitant]
     Active Substance: ESCITALOPRAM OXALATE
     Indication: Product used for unknown indication
     Route: 065

REACTIONS (8)
  - Multiple sclerosis [Unknown]
  - Gait disturbance [Unknown]
  - Hypokinesia [Unknown]
  - Visual impairment [Unknown]
  - Feeling abnormal [Unknown]
  - Exposure via breast milk [Unknown]
  - Drug monitoring procedure not performed [Unknown]
  - Product dose omission issue [Unknown]
